FAERS Safety Report 9961688 (Version 1)
Quarter: 2014Q1

REPORT INFORMATION
  Report Type: Report from Study
  Country: US (occurrence: US)
  Receive Date: 20140305
  Receipt Date: 20140305
  Transmission Date: 20141002
  Serious: No
  Sender: FDA-Public Use
  Company Number: US-ABBVIE-13P-163-1111086-00

PATIENT
  Age: 19 Year
  Sex: Female

DRUGS (7)
  1. HUMIRA [Suspect]
     Indication: COLITIS ULCERATIVE
     Route: 058
     Dates: start: 20130622
  2. GENERESS FE [Suspect]
     Indication: PRODUCT USED FOR UNKNOWN INDICATION
  3. BIRTH CONTROL MEDICATION [Suspect]
     Indication: PRODUCT USED FOR UNKNOWN INDICATION
  4. MULTIVITAMIN [Concomitant]
     Indication: VITAMIN SUPPLEMENTATION
     Dosage: TEEN VITAMIN
     Route: 048
  5. LIALDA [Concomitant]
     Indication: COLITIS ULCERATIVE
  6. PHILLIPS COLON HEALTH PROBIOTIC [Concomitant]
     Indication: COLITIS ULCERATIVE
     Dosage: DAILY
     Route: 048
  7. OMEPRAZOLE [Concomitant]
     Indication: COLITIS ULCERATIVE
     Route: 048

REACTIONS (2)
  - Nausea [Recovering/Resolving]
  - Headache [Recovering/Resolving]
